FAERS Safety Report 7816629-4 (Version None)
Quarter: 2011Q4

REPORT INFORMATION
  Report Type: 
  Country: None (occurrence: None)
  Receive Date: 20111017
  Receipt Date: 20110404
  Transmission Date: 20120403
  Serious: Yes (Other)
  Sender: FDA-Public Use
  Company Number: JP-BAYER-2011-026379

PATIENT
  Age: 72 Year
  Sex: Male
  Weight: 67 kg

DRUGS (17)
  1. NEXAVAR [Suspect]
     Dosage: DAILY DOSE 400 MG
     Route: 048
     Dates: start: 20110331, end: 20110413
  2. NEXAVAR [Suspect]
     Dosage: DAILY DOSE 800 MG
     Route: 048
     Dates: start: 20110901, end: 20110906
  3. FAMOTIDINE [Concomitant]
     Dosage: DAILY DOSE 20 MG
     Route: 048
     Dates: start: 20110331
  4. KAYWAN [Concomitant]
     Dosage: DAILY DOSE 15 MG
     Route: 048
     Dates: start: 20110519, end: 20110608
  5. NEXAVAR [Suspect]
     Indication: HEPATIC NEOPLASM MALIGNANT
     Dosage: 200 MG, QID
     Route: 048
     Dates: start: 20110317, end: 20110330
  6. NEXAVAR [Suspect]
     Dosage: DAILY DOSE 800 MG
     Route: 048
     Dates: start: 20110414, end: 20110608
  7. AMLODIPINE [Concomitant]
     Dosage: UNK
     Route: 048
  8. AMLODIPINE [Concomitant]
     Indication: HYPERTENSION
     Dosage: DAILY DOSE 5 MG
     Route: 048
     Dates: start: 20110315
  9. NEXAVAR [Suspect]
     Dosage: DAILY DOSE 800 MG
     Route: 048
     Dates: start: 20110630, end: 20110717
  10. AMLODIPINE [Concomitant]
     Dosage: DAILY DOSE 10 MG
     Route: 048
     Dates: start: 20110624
  11. LENDORMIN [Concomitant]
     Indication: INSOMNIA
     Dosage: DAILY DOSE .25 MG
     Route: 048
     Dates: start: 20110319
  12. NEXAVAR [Suspect]
     Dosage: DAILY DOSE 400 MG
     Route: 048
     Dates: start: 20110609, end: 20110629
  13. CANDESARTAN CILEXETIL [Concomitant]
     Indication: HYPERTENSION
     Dosage: DAILY DOSE 12 MG
     Route: 048
     Dates: start: 20110331
  14. TRICHLORMETHIAZIDE [Concomitant]
     Indication: HYPERTENSION
     Dosage: DAILY DOSE 4 MG
     Route: 048
     Dates: start: 20110609
  15. PURSENNID [Concomitant]
     Indication: CONSTIPATION
     Dosage: DAILY DOSE 24 MG
     Route: 048
     Dates: start: 20110316
  16. AMLODIPINE [Concomitant]
     Dosage: UNK
     Route: 048
     Dates: start: 20110319
  17. SYAKUYAKUKANZOTO [Concomitant]
     Indication: MUSCLE SPASMS
     Dosage: DAILY DOSE 7.5 G
     Route: 048
     Dates: start: 20110714, end: 20110717

REACTIONS (5)
  - FLASHBACK [None]
  - PALMAR-PLANTAR ERYTHRODYSAESTHESIA SYNDROME [None]
  - HALLUCINATION [None]
  - HYPERTENSION [None]
  - HALLUCINATION, AUDITORY [None]
